FAERS Safety Report 24534810 (Version 2)
Quarter: 2024Q4

REPORT INFORMATION
  Report Type: Spontaneous
  Country: US (occurrence: US)
  Receive Date: 20241022
  Receipt Date: 20241105
  Transmission Date: 20250114
  Serious: Yes (Hospitalization)
  Sender: VIFOR (INTERNATIONAL) INC.
  Company Number: US-Vifor (International) Inc.-VIT-2024-09660

PATIENT
  Age: 49 Year
  Sex: Female
  Weight: 92 kg

DRUGS (1)
  1. MIRCERA [Suspect]
     Active Substance: METHOXY POLYETHYLENE GLYCOL-EPOETIN BETA
     Indication: Nephrogenic anaemia
     Dosage: FIRST DOSE
     Route: 042
     Dates: start: 20241008, end: 20241008

REACTIONS (4)
  - Drug hypersensitivity [Recovered/Resolved]
  - Pruritus [Recovered/Resolved]
  - Feeling hot [Recovered/Resolved]
  - Dyskinesia [Recovered/Resolved]

NARRATIVE: CASE EVENT DATE: 20241008
